FAERS Safety Report 9475801 (Version 1)
Quarter: 2013Q3

REPORT INFORMATION
  Report Type: Spontaneous
  Country: US (occurrence: None)
  Receive Date: 20130822
  Receipt Date: 20130822
  Transmission Date: 20140515
  Serious: Yes (Hospitalization)
  Sender: FDA-Public Use
  Company Number: None

PATIENT
  Age: 70 Year
  Sex: Female
  Weight: 88.3 kg

DRUGS (2)
  1. CYTARABINE [Suspect]
     Dates: start: 20130628
  2. DAUNORUBICIN [Suspect]
     Dates: start: 20130624

REACTIONS (7)
  - Abdominal pain [None]
  - Neutropenia [None]
  - Colitis [None]
  - Pneumoperitoneum [None]
  - Pneumatosis intestinalis [None]
  - Zygomycosis [None]
  - Sepsis [None]
